FAERS Safety Report 9555893 (Version 1)
Quarter: 2013Q3

REPORT INFORMATION
  Report Type: Spontaneous
  Country: US (occurrence: None)
  Receive Date: 20130826
  Receipt Date: 20130826
  Transmission Date: 20140515
  Serious: Yes (Other)
  Sender: FDA-Public Use
  Company Number: 2013-13037

PATIENT
  Sex: Female

DRUGS (1)
  1. INFED [Suspect]
     Indication: RENAL FAILURE CHRONIC
     Dosage: UNK, INTRAVENOUS
     Route: 042

REACTIONS (2)
  - Bradycardia [None]
  - Hypotension [None]
